FAERS Safety Report 6664130-6 (Version None)
Quarter: 2010Q2

REPORT INFORMATION
  Report Type: 
  Country: None (occurrence: None)
  Receive Date: 20100401
  Receipt Date: 20100329
  Transmission Date: 20101027
  Serious: Yes (Hospitalization)
  Sender: FDA-Public Use
  Company Number: B0642317A

PATIENT
  Sex: Female
  Weight: 108 kg

DRUGS (4)
  1. LAPATINIB [Suspect]
     Indication: BREAST CANCER
     Dosage: 1500MG PER DAY
     Route: 048
     Dates: start: 20091211
  2. TRASTUZUMAB [Suspect]
     Indication: BREAST CANCER
     Dosage: 2MGK WEEKLY
     Route: 042
     Dates: start: 20090807
  3. PACLITAXEL [Suspect]
     Indication: BREAST CANCER
     Dosage: 80MGM2 WEEKLY
     Route: 042
     Dates: start: 20090807
  4. RADIATION THERAPY [Suspect]
     Dates: start: 20100118, end: 20100222

REACTIONS (5)
  - ERYTHEMA [None]
  - INFECTION [None]
  - RADIATION SKIN INJURY [None]
  - RASH [None]
  - STAPHYLOCOCCAL INFECTION [None]
